FAERS Safety Report 4486574-3 (Version None)
Quarter: 2004Q4

REPORT INFORMATION
  Report Type: 
  Country: None (occurrence: None)
  Receive Date: 20041021
  Receipt Date: 20041006
  Transmission Date: 20050328
  Serious: Yes (Hospitalization)
  Sender: FDA-Public Use
  Company Number: 2004233251JP

PATIENT
  Age: 54 Year
  Sex: Female

DRUGS (3)
  1. AZULFIDINE [Suspect]
     Indication: RHEUMATOID ARTHRITIS
     Dosage: 500 MG, BID, ORAL
     Route: 048
     Dates: start: 20040818, end: 20040913
  2. FLUCAM(AMPIROXICAM) [Suspect]
     Dosage: 27 MG/DAY, ORAL
     Route: 048
     Dates: start: 20040608, end: 20040901
  3. PREDNISOLONE [Concomitant]

REACTIONS (4)
  - LIVER DISORDER [None]
  - PLATELET COUNT DECREASED [None]
  - RASH [None]
  - WHITE BLOOD CELL COUNT DECREASED [None]
